FAERS Safety Report 9066529 (Version 1)
Quarter: 2013Q1

REPORT INFORMATION
  Report Type: Report from Study
  Country: US (occurrence: US)
  Receive Date: 20130131
  Receipt Date: 20130131
  Transmission Date: 20140127
  Serious: No
  Sender: FDA-Public Use
  Company Number: US-ABBOTT-12P-163-1009339-00

PATIENT
  Age: 53 Year
  Sex: Female

DRUGS (11)
  1. HUMIRA [Suspect]
     Indication: RHEUMATOID ARTHRITIS
  2. METHOTREXATE [Concomitant]
     Indication: PRODUCT USED FOR UNKNOWN INDICATION
     Dosage: WEEKLY INJECTION
  3. CLONIDINE [Concomitant]
     Indication: PRODUCT USED FOR UNKNOWN INDICATION
     Dosage: DAILY
  4. HYDROCHLOROTHIAZID [Concomitant]
     Indication: HYPERTENSION
     Dosage: DAILY
  5. PRILOSEC [Concomitant]
     Indication: GASTROOESOPHAGEAL REFLUX DISEASE
     Dosage: DAILY
  6. TRAMADOL [Concomitant]
     Indication: INFLAMMATION
     Dosage: 2 AT BEDTIME
  7. IBUPROFEN [Concomitant]
     Indication: PAIN
  8. ASA [Concomitant]
     Indication: PROPHYLAXIS
     Dosage: DAILY
  9. FLONASE [Concomitant]
     Indication: HYPERSENSITIVITY
  10. FOSAMAX [Concomitant]
     Indication: OSTEOPOROSIS
     Dosage: WEEKLY
  11. CALCIUM SUPPLEMENT [Concomitant]
     Indication: PRODUCT USED FOR UNKNOWN INDICATION

REACTIONS (2)
  - Osteoporosis [Not Recovered/Not Resolved]
  - Device malfunction [Not Recovered/Not Resolved]
